FAERS Safety Report 13142313 (Version 2)
Quarter: 2017Q3

REPORT INFORMATION
  Report Type: Report from Study
  Country: US (occurrence: US)
  Receive Date: 20170123
  Receipt Date: 20170707
  Transmission Date: 20171127
  Serious: Yes (Hospitalization)
  Sender: FDA-Public Use
  Company Number: US-ACTELION-A-US2017-148763

PATIENT
  Age: 83 Year
  Sex: Male
  Weight: 106.58 kg

DRUGS (2)
  1. AMLODIPINE [Concomitant]
     Active Substance: AMLODIPINE BESYLATE
  2. OPSUMIT [Suspect]
     Active Substance: MACITENTAN
     Indication: PULMONARY ARTERIAL HYPERTENSION
     Dosage: 10 MG, QD
     Route: 048
     Dates: start: 20131223

REACTIONS (5)
  - Fatigue [Unknown]
  - Anaemia [Unknown]
  - Fall [Unknown]
  - Parkinson^s disease [Unknown]
  - Dementia [Unknown]
